FAERS Safety Report 10641341 (Version 1)
Quarter: 2014Q4

REPORT INFORMATION
  Report Type: Spontaneous
  Country: None (occurrence: None)
  Receive Date: 20141208
  Receipt Date: 20141208
  Transmission Date: 20150529
  Serious: Yes (Other)
  Sender: FDA-Public Use
  Company Number: 2014120028

PATIENT
  Age: 75 Year
  Sex: Female

DRUGS (8)
  1. SOLMUCOL (ACETYLCYSTEINE) [Concomitant]
  2. PULMISON (PREDNISONE) [Concomitant]
  3. PRITOR (LACIDIPINE) [Concomitant]
  4. ADCO-ZOPIMED (ZOPICLONE) [Concomitant]
  5. UNAT (TORASEMIDE) [Suspect]
     Active Substance: TORSEMIDE
     Indication: DIURETIC THERAPY
     Route: 048
  6. PULMICORT TURBUHALER [Concomitant]
     Active Substance: BUDESONIDE
  7. TOPZOLE (PANTOPRAZOLE SODIUM) [Concomitant]
  8. DUOLIN (SALBUTAMOL, IPRATROPIUM BROMIDE) [Concomitant]

REACTIONS (1)
  - Bronchitis [None]

NARRATIVE: CASE EVENT DATE: 201410
